FAERS Safety Report 7818491-2 (Version None)
Quarter: 2011Q4

REPORT INFORMATION
  Report Type: 
  Country: None (occurrence: None)
  Receive Date: 20111017
  Receipt Date: 20111007
  Transmission Date: 20120403
  Serious: Yes (Hospitalization, Disabling)
  Sender: FDA-Public Use
  Company Number: US-ALLERGAN-1013197US

PATIENT
  Age: 44 Year
  Sex: Male
  Weight: 93.288 kg

DRUGS (20)
  1. BOTULINUM TOXIN TYPE A [Suspect]
     Indication: BACK PAIN
     Dosage: 200 UNITS, SINGLE
     Route: 030
     Dates: start: 20081014, end: 20081014
  2. BOTULINUM TOXIN TYPE A [Suspect]
     Dosage: 200 UNK, SINGLE
     Route: 030
     Dates: start: 20080410, end: 20080410
  3. CARDIZEM CD [Concomitant]
     Dosage: 360 MG, QD
  4. HYDROCHLOROTHIAZIDE [Concomitant]
     Dosage: 12.5 MG, UNK
  5. BOTULINUM TOXIN TYPE A [Suspect]
     Dosage: 200 UNK, SINGLE
     Route: 030
     Dates: start: 20080108, end: 20080108
  6. BUSPIRONE HCL [Concomitant]
     Dosage: 10 MG, BID
     Route: 048
  7. PREVACID [Concomitant]
     Dosage: 30 MG, QHS
  8. SKELAXIN [Concomitant]
     Dosage: 60 MG, QD
  9. ASPIRIN [Concomitant]
     Dosage: 81 MG, QD
     Route: 048
  10. LEVBID [Concomitant]
     Dosage: 0.75 MG, UNK
  11. MIRALAX [Concomitant]
     Dosage: 17 G, UNK
  12. BOTULINUM TOXIN TYPE A [Suspect]
     Dosage: 200 UNK, SINGLE
     Route: 030
     Dates: start: 20080708, end: 20080708
  13. FIBERCON [Concomitant]
     Dosage: 1250 UNK, BID
  14. MULTI-VITAMIN [Concomitant]
  15. VALTREX [Concomitant]
     Dosage: 1000 MG, QD
     Route: 048
  16. BOTULINUM TOXIN TYPE A [Suspect]
     Indication: MUSCLE SPASMS
     Dosage: 200 UNK, SINGLE
     Route: 030
     Dates: start: 20070713, end: 20070713
  17. BOTULINUM TOXIN TYPE A [Suspect]
     Dosage: 200 UNK, SINGLE
     Route: 030
     Dates: start: 20071003, end: 20071003
  18. FISH OIL [Concomitant]
     Dosage: 1200 MG, UNK
  19. ISOMER E [Concomitant]
     Dosage: 400 MG, QD
  20. XANAX [Concomitant]
     Dosage: 0.25 MG, PRN
     Route: 048

REACTIONS (3)
  - GUILLAIN-BARRE SYNDROME [None]
  - BOTULISM [None]
  - ASTHENIA [None]
